FAERS Safety Report 14909669 (Version 1)
Quarter: 2018Q2

REPORT INFORMATION
  Report Type: Spontaneous
  Country: PH (occurrence: PH)
  Receive Date: 20180517
  Receipt Date: 20180517
  Transmission Date: 20180711
  Serious: Yes (Hospitalization)
  Sender: FDA-Public Use
  Company Number: PH-JNJFOC-20180520491

PATIENT
  Age: 80 Year
  Sex: Male

DRUGS (1)
  1. XARELTO [Suspect]
     Active Substance: RIVAROXABAN
     Indication: CEREBROVASCULAR ACCIDENT PROPHYLAXIS
     Route: 048
     Dates: start: 201803

REACTIONS (4)
  - Acute kidney injury [Unknown]
  - Haemorrhage intracranial [Unknown]
  - Respiratory distress [Unknown]
  - Brain abscess [Unknown]

NARRATIVE: CASE EVENT DATE: 2018
